FAERS Safety Report 11146456 (Version 2)
Quarter: 2015Q2

REPORT INFORMATION
  Report Type: Spontaneous
  Country: IT (occurrence: None)
  Receive Date: 20150526
  Receipt Date: 20150630
  Transmission Date: 20150821
  Serious: Yes (Death, Hospitalization, Disabling, Other)
  Sender: FDA-Public Use
  Company Number: 2014DEPIT00044

PATIENT
  Age: 54 Year
  Sex: Female

DRUGS (2)
  1. CONTRAMAL (TRAMADOL HYDROCHLORIDE) [Concomitant]
  2. DEPOCYTE (CYTARABINE) LIPOSOME INJECTABLE SUSPENSION, MG [Suspect]
     Active Substance: CYTARABINE
     Indication: PROPHYLACTIC CHEMOTHERAPY
     Route: 037
     Dates: start: 20090319, end: 20090319

REACTIONS (12)
  - Gastrointestinal obstruction [None]
  - Asthenia [None]
  - Syncope [None]
  - Confusional state [None]
  - Sepsis [None]
  - Multi-organ failure [None]
  - Pyrexia [None]
  - Altered state of consciousness [None]
  - Febrile neutropenia [None]
  - Pneumonia [None]
  - Cholecystitis [None]
  - Headache [None]

NARRATIVE: CASE EVENT DATE: 20090325
